FAERS Safety Report 7502248-6 (Version None)
Quarter: 2011Q2

REPORT INFORMATION
  Report Type: 
  Country: None (occurrence: None)
  Receive Date: 20110525
  Receipt Date: 20110510
  Transmission Date: 20111010
  Serious: Yes (Hospitalization, Other)
  Sender: FDA-Public Use
  Company Number: US-JNJFOC-20110505665

PATIENT
  Sex: Female
  Weight: 77.11 kg

DRUGS (8)
  1. BENADRYL [Suspect]
     Indication: WOUND
     Route: 058
  2. ULTRAM [Suspect]
     Indication: PRODUCT USED FOR UNKNOWN INDICATION
     Route: 048
  3. FLEXERIL [Suspect]
     Indication: PRODUCT USED FOR UNKNOWN INDICATION
     Route: 048
  4. SYNTHROID [Concomitant]
     Indication: HYPOTHYROIDISM
     Dosage: 1MG/1 PER DAY
     Route: 048
  5. HYDROCHLOROTHIAZIDE [Concomitant]
     Indication: BLOOD PRESSURE
     Dosage: 1 PER DAY
     Route: 048
  6. BENADRYL [Suspect]
     Route: 058
  7. ACIPHEX [Suspect]
     Indication: GASTROOESOPHAGEAL REFLUX DISEASE
     Dosage: 2 TIMES PER DAY
     Route: 048
     Dates: end: 20110101
  8. TOPAMAX [Suspect]
     Indication: RESTLESS LEGS SYNDROME
     Dosage: 100MG 2 PER DAY
     Route: 048

REACTIONS (17)
  - MULTIPLE ALLERGIES [None]
  - RESPIRATORY DISORDER [None]
  - STRESS [None]
  - OFF LABEL USE [None]
  - SPINAL COLUMN STENOSIS [None]
  - OESOPHAGITIS [None]
  - MENTAL IMPAIRMENT [None]
  - DRY EYE [None]
  - URINARY INCONTINENCE [None]
  - SINUS DISORDER [None]
  - BRONCHITIS [None]
  - INTERVERTEBRAL DISC PROTRUSION [None]
  - OESOPHAGEAL RUPTURE [None]
  - BODY HEIGHT DECREASED [None]
  - ASTHENIA [None]
  - WOUND [None]
  - ADVERSE EVENT [None]
